FAERS Safety Report 7365209-6 (Version None)
Quarter: 2011Q1

REPORT INFORMATION
  Report Type: 
  Country: None (occurrence: None)
  Receive Date: 20110321
  Receipt Date: 20110308
  Transmission Date: 20110831
  Serious: Yes (Hospitalization, Other)
  Sender: FDA-Public Use
  Company Number: US-BAYER-2011-021673

PATIENT
  Sex: Male

DRUGS (2)
  1. NEXIUM [Concomitant]
  2. AVELOX [Suspect]
     Dosage: START DATE: EARLIER THIS WEEK
     Route: 048
     Dates: start: 20110301

REACTIONS (2)
  - HYPERSENSITIVITY [None]
  - DYSPNOEA [None]
